FAERS Safety Report 5788061-9 (Version None)
Quarter: 2008Q2

REPORT INFORMATION
  Report Type: 
  Country: None (occurrence: None)
  Receive Date: 20080623
  Receipt Date: 20080611
  Transmission Date: 20081010
  Serious: Yes (Death)
  Sender: FDA-Public Use
  Company Number: 2008-0004

PATIENT
  Age: 58 Year
  Sex: Male

DRUGS (1)
  1. CITALOPRAM HYDROBROMIDE [Suspect]

REACTIONS (10)
  - ABNORMAL BEHAVIOUR [None]
  - ASPHYXIA [None]
  - COMPLETED SUICIDE [None]
  - FATIGUE [None]
  - HALLUCINATION, AUDITORY [None]
  - IMPAIRED WORK ABILITY [None]
  - INSOMNIA [None]
  - RESTLESSNESS [None]
  - SOMNOLENCE [None]
  - STRESS [None]
